FAERS Safety Report 5695050-1 (Version None)
Quarter: 2008Q2

REPORT INFORMATION
  Report Type: 
  Country: None (occurrence: None)
  Receive Date: 20080404
  Receipt Date: 20080226
  Transmission Date: 20081010
  Serious: Yes (Other)
  Sender: FDA-Public Use
  Company Number: IT-SANOFI-SYNTHELABO-A06200800066

PATIENT
  Sex: Female

DRUGS (2)
  1. FLUOROURACIL [Concomitant]
     Indication: DRUG USE FOR UNKNOWN INDICATION
     Route: 042
  2. ELOXATIN [Suspect]
     Indication: COLON CANCER
     Route: 041
     Dates: start: 20080213, end: 20080213

REACTIONS (4)
  - ERYTHEMA [None]
  - HYPERSENSITIVITY [None]
  - LARYNGOSPASM [None]
  - TREMOR [None]
